FAERS Safety Report 6874432-6 (Version None)
Quarter: 2010Q3

REPORT INFORMATION
  Report Type: 
  Country: None (occurrence: None)
  Receive Date: 20100722
  Receipt Date: 20100722
  Transmission Date: 20110219
  Serious: No
  Sender: FDA-Public Use
  Company Number: None

PATIENT

DRUGS (4)
  1. GLYCOPYRROLATE [Suspect]
     Dosage: INJECTABLE
  2. MAGNESIUM SULFATE [Suspect]
     Dosage: INJECTABLE
  3. NOREPINEPHRINE BITARTRATE [Suspect]
     Dosage: INJECTABLE
  4. DEXAMETHASONE [Suspect]
     Dosage: INJECTABLE

REACTIONS (4)
  - CARDIOVASCULAR DISORDER [None]
  - DRUG DISPENSING ERROR [None]
  - MEDICATION ERROR [None]
  - WRONG DRUG ADMINISTERED [None]
